FAERS Safety Report 8337208-9 (Version None)
Quarter: 2012Q2

REPORT INFORMATION
  Report Type: 
  Country: None (occurrence: None)
  Receive Date: 20120502
  Receipt Date: 20120423
  Transmission Date: 20120825
  Serious: Yes (Hospitalization, Other)
  Sender: FDA-Public Use
  Company Number: 2012SP021634

PATIENT
  Sex: Female

DRUGS (2)
  1. PEG-INTRON [Suspect]
     Indication: HEPATITIS C
     Dates: start: 20120204, end: 20120303
  2. RIBAVIRIN [Suspect]
     Indication: HEPATITIS C
     Dates: start: 20120204, end: 20120303

REACTIONS (7)
  - HAEMOGLOBIN DECREASED [None]
  - VOMITING [None]
  - ASTHENIA [None]
  - PRESYNCOPE [None]
  - BLOOD PRESSURE IMMEASURABLE [None]
  - DYSSTASIA [None]
  - HYPOTENSION [None]
